FAERS Safety Report 4545835-X (Version None)
Quarter: 2005Q1

REPORT INFORMATION
  Report Type: 
  Country: None (occurrence: None)
  Receive Date: 20050103
  Receipt Date: 20041228
  Transmission Date: 20050727
  Serious: Yes (Other)
  Sender: FDA-Public Use
  Company Number: 2004120181

PATIENT
  Sex: Male

DRUGS (1)
  1. LIPITOR [Suspect]
     Indication: ILL-DEFINED DISORDER

REACTIONS (4)
  - ARTERIAL OCCLUSIVE DISEASE [None]
  - ASTHENIA [None]
  - MYALGIA [None]
  - POOR PERIPHERAL CIRCULATION [None]
